FAERS Safety Report 5472270-2 (Version None)
Quarter: 2007Q3

REPORT INFORMATION
  Report Type: 
  Country: None (occurrence: None)
  Receive Date: 20070927
  Receipt Date: 20070913
  Transmission Date: 20080115
  Serious: Yes (Other)
  Sender: FDA-Public Use
  Company Number: DSU-2007-00612

PATIENT
  Age: 55 Year
  Sex: Female

DRUGS (4)
  1. BENICAR [Suspect]
     Indication: HYPERTENSION
     Dosage: 40 MG (40 MG, QD), PER ORAL
     Route: 048
     Dates: start: 20070814, end: 20070825
  2. LUNESTA (TABLET) [Concomitant]
  3. DYAZIDE (HYDROCHLOROTHIAZIDE, TRIAMTERENE) (HYDROCHLOROTHIAZIDE, TRIA [Concomitant]
  4. ALLOPURINOL (ALLOPURINOL) (ALLOPURINOL) [Concomitant]

REACTIONS (4)
  - ALANINE AMINOTRANSFERASE INCREASED [None]
  - ASPARTATE AMINOTRANSFERASE INCREASED [None]
  - BLOOD ALKALINE PHOSPHATASE INCREASED [None]
  - STEVENS-JOHNSON SYNDROME [None]
